FAERS Safety Report 23353600 (Version 1)
Quarter: 2024Q1

REPORT INFORMATION
  Report Type: Other
  Country: US (occurrence: None)
  Receive Date: 20240101
  Receipt Date: 20240101
  Transmission Date: 20240409
  Serious: No
  Sender: FDA-Public Use
  Company Number: US-ROCHE-3483723

PATIENT
  Age: 56 Year
  Sex: Female

DRUGS (1)
  1. OCREVUS [Suspect]
     Active Substance: OCRELIZUMAB
     Indication: Multiple sclerosis
     Dosage: DATE OF INFUSION 22/JUN/2023, LAST INFUSION 21/DEC/2023, DATE OF SERVICE 14/DEC/2022
     Route: 042

REACTIONS (1)
  - COVID-19 [Not Recovered/Not Resolved]
